FAERS Safety Report 19149773 (Version 1)
Quarter: 2021Q2

REPORT INFORMATION
  Report Type: Spontaneous
  Country: CN (occurrence: CN)
  Receive Date: 20210416
  Receipt Date: 20210416
  Transmission Date: 20210717
  Serious: Yes (Hospitalization)
  Sender: FDA-Public Use
  Company Number: CN-BAXTER-2021BAX007201

PATIENT
  Age: 39 Year
  Sex: Female
  Weight: 70 kg

DRUGS (5)
  1. ENDOXAN [Suspect]
     Active Substance: CYCLOPHOSPHAMIDE
     Indication: BREAST CANCER FEMALE
     Dosage: CYCLOPHOSPHAMIDE 900 MG + 0.9% SODIUM CHLORIDE 100 ML, DAY 1
     Route: 041
     Dates: start: 20210310, end: 20210310
  2. 0.9% SODIUM CHLORIDE INJECTION [Suspect]
     Active Substance: SODIUM CHLORIDE
     Indication: MEDICATION DILUTION
     Dosage: 0.9% SODIUM CHLORIDE 100 ML + CYCLOPHOSPHAMIDE 900 MG, DAY 1
     Route: 041
     Dates: start: 20210310, end: 20210310
  3. 5% GLUCOSE  INJECTION [Suspect]
     Active Substance: DEXTROSE
     Indication: MEDICATION DILUTION
     Dosage: 5% GLUCOSE 100 ML + PIRARUBICIN HYDROCHLORIDE 90 MG, DAY 1
     Route: 041
     Dates: start: 20210310, end: 20210310
  4. PIRARUBICIN HYDROCHLORIDE [Suspect]
     Active Substance: PIRARUBICIN HYDROCHLORIDE
     Indication: BREAST CANCER FEMALE
     Dosage: 5% GLUCOSE INJECTION 100ML + PIRARUBICIN HYDROCHLORIDE FOR INJECTION 90 MG , DAY 1
     Route: 041
     Dates: start: 20210310, end: 20210310
  5. RECOMBINANT HUMAN GRANULOCYTE STIMULATING FACTOR [Concomitant]
     Active Substance: GRANULOCYTE COLONY-STIMULATING FACTOR NOS
     Indication: PROPHYLAXIS
     Route: 058
     Dates: start: 202103

REACTIONS (1)
  - Myelosuppression [Recovered/Resolved]

NARRATIVE: CASE EVENT DATE: 20210324
